FAERS Safety Report 12763426 (Version 1)
Quarter: 2016Q3

REPORT INFORMATION
  Report Type: Not Available
  Country: None (occurrence: US)
  Receive Date: 20160920
  Receipt Date: 20160920
  Transmission Date: 20161109
  Serious: No
  Sender: FDA-Public Use
  Company Number: US-AKORN-33843

PATIENT

DRUGS (1)
  1. LIDOCAINE 2.5% AND PRILOCAINE 2.5% CREAM [Suspect]
     Active Substance: LIDOCAINE\PRILOCAINE

REACTIONS (3)
  - Blood blister [None]
  - Blood pressure increased [None]
  - Anxiety [None]
